FAERS Safety Report 15276257 (Version 1)
Quarter: 2018Q3

REPORT INFORMATION
  Report Type: Spontaneous
  Country: US (occurrence: US)
  Receive Date: 20180727
  Receipt Date: 20180727
  Transmission Date: 20181010
  Serious: No
  Sender: FDA-Public Use
  Company Number: None

PATIENT
  Age: 78 Year
  Sex: Male

DRUGS (10)
  1. IBUPROFEN. [Suspect]
     Active Substance: IBUPROFEN
     Route: 048
     Dates: start: 20180603, end: 20180604
  2. FLUDROCORTISONE [Concomitant]
     Active Substance: FLUDROCORTISONE
  3. CARBIDOPA/LEVODOPA [Concomitant]
     Active Substance: CARBIDOPA\LEVODOPA
  4. QUETIAPINE. [Concomitant]
     Active Substance: QUETIAPINE
  5. FLUTICASONE. [Concomitant]
     Active Substance: FLUTICASONE
  6. DONEPEZIL. [Concomitant]
     Active Substance: DONEPEZIL
  7. MECLIZINE [Concomitant]
     Active Substance: MECLIZINE HYDROCHLORIDE
  8. MELATONIN [Concomitant]
     Active Substance: MELATONIN
  9. MEMANTINE. [Concomitant]
     Active Substance: MEMANTINE
  10. SELEQILINE [Concomitant]

REACTIONS (12)
  - Abdominal pain [None]
  - Nausea [None]
  - Pneumonia aspiration [None]
  - Gastrointestinal haemorrhage [None]
  - Vomiting [None]
  - Fatigue [None]
  - Diarrhoea [None]
  - Asthenia [None]
  - Tachycardia [None]
  - Dizziness [None]
  - Leukocytosis [None]
  - Hypotension [None]

NARRATIVE: CASE EVENT DATE: 20180607
